FAERS Safety Report 10510627 (Version 4)
Quarter: 2014Q4

REPORT INFORMATION
  Report Type: Spontaneous
  Country: CH (occurrence: None)
  Receive Date: 20141008
  Receipt Date: 20141105
  Transmission Date: 20150528
  Serious: Yes (Death, Other)
  Sender: FDA-Public Use
  Company Number: 20140636

PATIENT
  Sex: Male
  Weight: .84 kg

DRUGS (3)
  1. FERINJECT [Suspect]
     Active Substance: FERRIC CARBOXYMALTOSE
     Indication: IRON DEFICIENCY ANAEMIA
     Dosage: 1 GM (1 IN 1 D, TOTAL)
     Route: 064
     Dates: start: 20140923, end: 20140923
  2. LOVENOX [Suspect]
     Active Substance: ENOXAPARIN SODIUM
     Indication: PRODUCT USED FOR UNKNOWN INDICATION
     Route: 064
  3. VENOFER [Suspect]
     Active Substance: IRON SUCROSE
     Indication: IRON DEFICIENCY ANAEMIA
     Route: 064
     Dates: start: 201406, end: 201406

REACTIONS (3)
  - Foetal exposure during pregnancy [None]
  - Foetal death [None]
  - Tachycardia foetal [None]

NARRATIVE: CASE EVENT DATE: 20140923
